FAERS Safety Report 9714190 (Version 1)
Quarter: 2013Q4

REPORT INFORMATION
  Report Type: Spontaneous
  Country: US (occurrence: US)
  Receive Date: 20131126
  Receipt Date: 20131126
  Transmission Date: 20140711
  Serious: No
  Sender: FDA-Public Use
  Company Number: US-GILEAD-2008-0019305

PATIENT
  Sex: Female
  Weight: 88.45 kg

DRUGS (11)
  1. LETAIRIS [Suspect]
     Indication: PULMONARY ARTERIAL HYPERTENSION
     Route: 048
     Dates: start: 20081003
  2. COUMADIN [Concomitant]
  3. LASIX [Concomitant]
  4. LIPITOR [Concomitant]
  5. ATACAND [Concomitant]
  6. METFORMIN [Concomitant]
  7. CARBIDOPA-LEVO [Concomitant]
  8. ALLOPURINOL [Concomitant]
  9. REQUIP [Concomitant]
  10. CITALOPRAM [Concomitant]
  11. ASPIRIN [Concomitant]

REACTIONS (1)
  - Swelling [None]
